FAERS Safety Report 16411287 (Version 1)
Quarter: 2019Q2

REPORT INFORMATION
  Report Type: Spontaneous
  Country: BE (occurrence: BE)
  Receive Date: 20190610
  Receipt Date: 20190610
  Transmission Date: 20190711
  Serious: Yes (Other)
  Sender: FDA-Public Use
  Company Number: BE-TEVA-2019-BE-1059557

PATIENT
  Sex: Female

DRUGS (2)
  1. CIPROFLOXACIN. [Suspect]
     Active Substance: CIPROFLOXACIN
     Route: 048
  2. PENTASA [Suspect]
     Active Substance: MESALAMINE
     Route: 065

REACTIONS (3)
  - Sleep disorder [Unknown]
  - Chest pain [Unknown]
  - Palpitations [Unknown]
